FAERS Safety Report 9767450 (Version 1)
Quarter: 2013Q4

REPORT INFORMATION
  Report Type: Spontaneous
  Country: US (occurrence: None)
  Receive Date: 20131105
  Receipt Date: 20131105
  Transmission Date: 20140711
  Serious: Yes (Other)
  Sender: FDA-Public Use
  Company Number: 54973 AE # 1514

PATIENT
  Age: 4 Year
  Sex: Male

DRUGS (2)
  1. HOMEOPATHICS [Suspect]
     Indication: NASOPHARYNGITIS
     Dosage: 1 TSP ON 5/6/13 + 9/2013
  2. HOMEOPATHICS [Suspect]
     Indication: PYREXIA
     Dosage: 1 TSP ON 5/6/13 + 9/2013

REACTIONS (1)
  - Convulsion [None]
